FAERS Safety Report 23027923 (Version 2)
Quarter: 2024Q3

REPORT INFORMATION
  Report Type: Spontaneous
  Country: CA (occurrence: CA)
  Receive Date: 20231004
  Receipt Date: 20240723
  Transmission Date: 20241017
  Serious: Yes (Other)
  Sender: PFIZER
  Company Number: CA-PFIZER INC-202300309509

PATIENT
  Age: 40 Year
  Weight: 119 kg

DRUGS (16)
  1. METHOTREXATE SODIUM [Suspect]
     Active Substance: METHOTREXATE SODIUM
     Indication: Psoriasis
     Dosage: UNK
  2. ACITRETIN [Suspect]
     Active Substance: ACITRETIN
     Dosage: 25 MG, 1X/DAY
     Route: 048
  3. CIMZIA [Suspect]
     Active Substance: CERTOLIZUMAB PEGOL
     Dosage: UNK
  4. HUMIRA [Suspect]
     Active Substance: ADALIMUMAB
     Dosage: UNK
     Route: 058
  5. LEFLUNOMIDE [Suspect]
     Active Substance: LEFLUNOMIDE
     Dosage: UNK
  6. MYCOPHENOLATE MOFETIL [Suspect]
     Active Substance: MYCOPHENOLATE MOFETIL
     Dosage: UNK
  7. MYCOPHENOLATE SODIUM [Suspect]
     Active Substance: MYCOPHENOLATE SODIUM
     Dosage: 720 MG, 2X/DAY
  8. MYCOPHENOLATE SODIUM [Suspect]
     Active Substance: MYCOPHENOLATE SODIUM
     Dosage: UNK
     Route: 065
  9. STELARA [Suspect]
     Active Substance: USTEKINUMAB
     Dosage: UNK
  10. BETAMETHASONE DIPROPIONATE\CALCIPOTRIENE [Concomitant]
     Active Substance: BETAMETHASONE DIPROPIONATE\CALCIPOTRIENE
     Dosage: UNK
  11. CERTOLIZUMAB PEGOL [Concomitant]
     Active Substance: CERTOLIZUMAB PEGOL
     Route: 058
  12. LOSEC [Concomitant]
     Active Substance: OMEPRAZOLE
     Dosage: UNK
  13. FLUOCINONIDE [Concomitant]
     Active Substance: FLUOCINONIDE
     Dosage: UNK
  14. MOMETASONE FUROATE [Concomitant]
     Active Substance: MOMETASONE FUROATE
     Dosage: UNK
  15. NAPROXEN [Concomitant]
     Active Substance: NAPROXEN
     Dosage: UNK
  16. SULFASALAZINE [Concomitant]
     Active Substance: SULFASALAZINE
     Dosage: UNK

REACTIONS (15)
  - Drug ineffective [Unknown]
  - Abdominal discomfort [Unknown]
  - Arthralgia [Unknown]
  - Arthritis [Unknown]
  - Asthma [Unknown]
  - Crohn^s disease [Unknown]
  - Diarrhoea [Unknown]
  - Dry skin [Unknown]
  - Fatigue [Unknown]
  - Hidradenitis [Unknown]
  - Irritable bowel syndrome [Unknown]
  - Migraine [Unknown]
  - Nausea [Unknown]
  - Non-alcoholic fatty liver [Unknown]
  - Psoriasis [Unknown]
